FAERS Safety Report 4704461-X (Version None)
Quarter: 2005Q2

REPORT INFORMATION
  Report Type: 
  Country: None (occurrence: None)
  Receive Date: 20050630
  Receipt Date: 20050630
  Transmission Date: 20051028
  Serious: Yes (Hospitalization)
  Sender: FDA-Public Use
  Company Number: None

PATIENT
  Age: 45 Year
  Sex: Male
  Weight: 71 kg

DRUGS (9)
  1. METFORMIN 500 MG [Suspect]
     Indication: DIABETES MELLITUS
     Dosage: 500 MG QHS ORAL
     Route: 048
     Dates: start: 20040324, end: 20040325
  2. GLYBURIDE [Suspect]
     Indication: DIABETES MELLITUS
     Dosage: 10 MG BID ORAL
     Route: 048
     Dates: start: 20040324, end: 20040325
  3. BNETROPINE [Concomitant]
  4. LISINOPRIL [Concomitant]
  5. PROPRANOLOL [Concomitant]
  6. ZANTAC [Concomitant]
  7. GABAPENTIN [Concomitant]
  8. ALBUTEROL [Concomitant]
  9. IPRATROPIUM INHALER [Concomitant]

REACTIONS (1)
  - HYPOGLYCAEMIA [None]
